FAERS Safety Report 8608446-2 (Version None)
Quarter: 2012Q3

REPORT INFORMATION
  Report Type: 
  Country: None (occurrence: None)
  Receive Date: 20120808
  Receipt Date: 20120723
  Transmission Date: 20120928
  Serious: Yes (Other)
  Sender: FDA-Public Use
  Company Number: TR-20120102

PATIENT

DRUGS (4)
  1. HEXABRIX [Suspect]
     Indication: ARTERIOGRAM CORONARY
     Dosage: UNK (1 IN 1 TOTAL)
  2. ACETYLCYSTEINE [Concomitant]
  3. NEBIVOLOL [Concomitant]
  4. NACL 0.94% (SODIUM CHLORIDE) [Concomitant]

REACTIONS (2)
  - RETROPERITONEAL HAEMORRHAGE [None]
  - HYPOTENSION [None]
